FAERS Safety Report 6694142-8 (Version None)
Quarter: 2010Q2

REPORT INFORMATION
  Report Type: 
  Country: None (occurrence: None)
  Receive Date: 20100423
  Receipt Date: 20090728
  Transmission Date: 20101027
  Serious: No
  Sender: FDA-Public Use
  Company Number: A0800186A

PATIENT
  Age: 73 Year
  Sex: Female

DRUGS (2)
  1. FLOVENT [Suspect]
  2. ZEGERID [Suspect]

REACTIONS (1)
  - APHTHOUS STOMATITIS [None]
